FAERS Safety Report 22323350 (Version 1)
Quarter: 2023Q2

REPORT INFORMATION
  Report Type: Spontaneous
  Country: US (occurrence: US)
  Receive Date: 20230516
  Receipt Date: 20230516
  Transmission Date: 20230721
  Serious: Yes (Other)
  Sender: FDA-Public Use
  Company Number: US-BAYER-2023A065842

PATIENT
  Age: 29 Year
  Sex: Female

DRUGS (2)
  1. ASPIRIN [Suspect]
     Active Substance: ASPIRIN
     Indication: Hypertension
     Dosage: 1 DF, QD (DAILY)
  2. NIFEDIPINE [Concomitant]
     Active Substance: NIFEDIPINE
     Indication: Hypertension

REACTIONS (5)
  - Pre-eclampsia [None]
  - Placental insufficiency [None]
  - Premature delivery [None]
  - Contraindicated product administered [None]
  - Maternal exposure during pregnancy [None]
